FAERS Safety Report 11964117 (Version 1)
Quarter: 2016Q1

REPORT INFORMATION
  Report Type: Spontaneous
  Country: US (occurrence: None)
  Receive Date: 20160122
  Receipt Date: 20160122
  Transmission Date: 20160526
  Serious: Yes (Disabling)
  Sender: FDA-Public Use
  Company Number: None

PATIENT
  Age: 48 Year
  Sex: Female
  Weight: 68.04 kg

DRUGS (6)
  1. REMICADE [Suspect]
     Active Substance: INFLIXIMAB
     Indication: CROHN^S DISEASE
     Dosage: INFUSION ONCE EVERY 8 WEEKS INTO A VEIN
     Route: 042
     Dates: start: 20150415, end: 20150911
  2. OMEPRAZOLE. [Concomitant]
     Active Substance: OMEPRAZOLE
  3. CURCUMIN [Concomitant]
     Active Substance: CURCUMIN
  4. DAILY MULTI VITAMIN [Concomitant]
  5. CALCIUM [Concomitant]
     Active Substance: CALCIUM
  6. PENTASA [Concomitant]
     Active Substance: MESALAMINE

REACTIONS (3)
  - Tendon pain [None]
  - Insomnia [None]
  - Arthralgia [None]

NARRATIVE: CASE EVENT DATE: 20150911
